FAERS Safety Report 5122929-1 (Version None)
Quarter: 2006Q4

REPORT INFORMATION
  Report Type: 
  Country: None (occurrence: None)
  Receive Date: 20061009
  Receipt Date: 20060214
  Transmission Date: 20070319
  Serious: Yes (Life-Threatening)
  Sender: FDA-Public Use
  Company Number: JP-ROCHE-436904

PATIENT
  Age: 76 Year
  Sex: Female
  Weight: 54 kg

DRUGS (8)
  1. XELODA [Suspect]
     Indication: BREAST CANCER METASTATIC
     Route: 048
     Dates: start: 20060210, end: 20060211
  2. FARESTON [Concomitant]
     Route: 048
     Dates: start: 20060210, end: 20060211
  3. SODIUM RISEDRONATE [Concomitant]
     Dosage: DRUG REPORTED AS BENET (SODIUM RISEDRONATE HYDRATE).
     Route: 048
     Dates: start: 20060120, end: 20060215
  4. NEUROTROPIN [Concomitant]
     Route: 048
  5. MOBIC [Concomitant]
     Route: 048
     Dates: start: 20060120, end: 20060215
  6. DEPAS [Concomitant]
     Route: 048
     Dates: start: 20060120, end: 20060215
  7. LAC-B [Concomitant]
     Dosage: DRUG REPORTED AS ^LAC-B()^
     Route: 048
     Dates: start: 20030615
  8. CYANOCOBALAMIN [Concomitant]
     Route: 048
     Dates: start: 20030615

REACTIONS (8)
  - CHEILITIS [None]
  - DISSEMINATED INTRAVASCULAR COAGULATION [None]
  - GINGIVAL BLEEDING [None]
  - PANCYTOPENIA [None]
  - PYREXIA [None]
  - RENAL FAILURE ACUTE [None]
  - STOMATITIS [None]
  - VOMITING [None]
